FAERS Safety Report 4897811-5 (Version None)
Quarter: 2006Q1

REPORT INFORMATION
  Report Type: 
  Country: None (occurrence: None)
  Receive Date: 20060201
  Receipt Date: 20051127
  Transmission Date: 20060701
  Serious: Yes (Hospitalization, Other)
  Sender: FDA-Public Use
  Company Number: PHBS2005AR17965

PATIENT
  Sex: Female

DRUGS (2)
  1. BASOFORTINA [Suspect]
     Indication: ABORTION INDUCED
     Dates: start: 20051123
  2. FOLIC ACID [Concomitant]

REACTIONS (8)
  - CONVULSION [None]
  - DISCOMFORT [None]
  - FEELING HOT [None]
  - HYPOTENSION [None]
  - HYPOVOLAEMIA [None]
  - LOSS OF CONSCIOUSNESS [None]
  - MUSCLE SPASMS [None]
  - PALPITATIONS [None]
